FAERS Safety Report 5565065-2 (Version None)
Quarter: 2007Q4

REPORT INFORMATION
  Report Type: 
  Country: None (occurrence: None)
  Receive Date: 20071218
  Receipt Date: 20071214
  Transmission Date: 20080405
  Serious: Yes (Other)
  Sender: FDA-Public Use
  Company Number: DE-WYE-G00777407

PATIENT
  Sex: Female

DRUGS (2)
  1. TREVILOR [Suspect]
     Indication: NEURALGIA
     Route: 048
  2. NALOXONE [Concomitant]
     Dosage: UNKNOWN

REACTIONS (2)
  - CONSTIPATION [None]
  - INTESTINAL HAEMORRHAGE [None]
